FAERS Safety Report 4385633-3 (Version None)
Quarter: 2004Q2

REPORT INFORMATION
  Report Type: 
  Country: None (occurrence: None)
  Receive Date: 20040623
  Receipt Date: 20040609
  Transmission Date: 20050107
  Serious: Yes (Death, Disabling)
  Sender: FDA-Public Use
  Company Number: JP_040603366

PATIENT
  Age: 97 Year
  Sex: Male
  Weight: 44 kg

DRUGS (14)
  1. VANCOMYCIN [Suspect]
     Indication: WOUND INFECTION STAPHYLOCOCCAL
     Dosage: 1000 MG/M2
     Dates: start: 20040120, end: 20040128
  2. LASIX [Concomitant]
  3. ADALAT [Concomitant]
  4. MEXITIL [Concomitant]
  5. FERROMIA (FERROUS CITRATE) [Concomitant]
  6. ALLOPURINOL [Concomitant]
  7. PARIET (RABEPRAZOLE SODIUIM) [Concomitant]
  8. BLOPRESS (CANDESARTAN CILEXETIL) [Concomitant]
  9. DOXAZOSIN MESYLATE [Concomitant]
  10. MAGNESIUM OXIDE [Concomitant]
  11. CARNACULIN (PANCREAS EXTRACT) [Concomitant]
  12. EPADEL (ETHYL ICOSAPENTATE) [Concomitant]
  13. ASPARA K (ASPARTRATE POTASSIUM) [Concomitant]
  14. KETALAR [Concomitant]

REACTIONS (3)
  - BLOOD CREATININE INCREASED [None]
  - BLOOD UREA INCREASED [None]
  - CREATININE RENAL CLEARANCE DECREASED [None]
